FAERS Safety Report 6096221-5 (Version None)
Quarter: 2009Q1

REPORT INFORMATION
  Report Type: 
  Country: None (occurrence: None)
  Receive Date: 20090227
  Receipt Date: 20081007
  Transmission Date: 20090719
  Serious: No
  Sender: FDA-Public Use
  Company Number: A0750795A

PATIENT
  Sex: Female

DRUGS (5)
  1. LAMICTAL [Suspect]
     Dosage: 300MG AT NIGHT
     Route: 048
  2. PRISTIQ [Concomitant]
  3. RISPERIDONE [Concomitant]
  4. LORAZEPAM [Concomitant]
  5. METHOTREXATE [Concomitant]

REACTIONS (4)
  - ASTHENIA [None]
  - CONTUSION [None]
  - FATIGUE [None]
  - INFECTION [None]
